FAERS Safety Report 8523613-4 (Version None)
Quarter: 2012Q3

REPORT INFORMATION
  Report Type: 
  Country: None (occurrence: None)
  Receive Date: 20120720
  Receipt Date: 20120717
  Transmission Date: 20120928
  Serious: Yes (Death, Other)
  Sender: FDA-Public Use
  Company Number: DE-GENZYME-CAMP-1002312

PATIENT
  Sex: Male
  Weight: 86 kg

DRUGS (7)
  1. MABCAMPATH [Suspect]
     Indication: T-CELL LYMPHOMA
     Dosage: 30 MG, DAY 4 AND 5 OF EACH CYCLE 1-3
     Route: 065
     Dates: start: 20091210, end: 20100115
  2. MARCUMAR [Concomitant]
     Indication: ATRIAL FIBRILLATION
     Dosage: UNK
     Route: 065
  3. VINCRISTINE [Concomitant]
     Indication: T-CELL LYMPHOMA
     Dosage: 4 CYCLES
     Route: 065
     Dates: start: 20091201, end: 20100201
  4. PREDNISONE [Concomitant]
     Indication: T-CELL LYMPHOMA
     Dosage: 4 CYCLES
     Route: 065
     Dates: start: 20091201, end: 20100201
  5. CYCLOPHOSPHAMIDE [Concomitant]
     Indication: T-CELL LYMPHOMA
     Dosage: 4 CYCLES
     Route: 065
     Dates: start: 20091201, end: 20100201
  6. HEPARIN [Concomitant]
     Indication: ATRIAL FIBRILLATION
     Dosage: UNK
     Route: 058
  7. DOXORUBICIN HCL [Concomitant]
     Indication: T-CELL LYMPHOMA
     Dosage: 4 CYCLES
     Route: 065
     Dates: start: 20091201, end: 20100201

REACTIONS (5)
  - CYTOMEGALOVIRUS INFECTION [None]
  - PULMONARY EMBOLISM [None]
  - LYMPHOMA [None]
  - SEPSIS [None]
  - PNEUMONIA [None]
